FAERS Safety Report 4277468-7 (Version None)
Quarter: 2004Q1

REPORT INFORMATION
  Report Type: 
  Country: None (occurrence: None)
  Receive Date: 20040122
  Receipt Date: 20040119
  Transmission Date: 20041129
  Serious: Yes (Other)
  Sender: FDA-Public Use
  Company Number: GB-ROCHE-356496

PATIENT
  Age: 29 Year
  Sex: Male
  Weight: 127 kg

DRUGS (1)
  1. ORLISTAT [Suspect]
     Indication: OBESITY
     Route: 048
     Dates: start: 20031106, end: 20031122

REACTIONS (1)
  - RENAL PAIN [None]
